FAERS Safety Report 9100635 (Version 1)
Quarter: 2013Q1

REPORT INFORMATION
  Report Type: Spontaneous
  Country: US (occurrence: US)
  Receive Date: 20130214
  Receipt Date: 20130214
  Transmission Date: 20140127
  Serious: Yes (Other)
  Sender: FDA-Public Use
  Company Number: PHEH2013US003536

PATIENT
  Sex: Female

DRUGS (3)
  1. RECLAST [Suspect]
  2. FOSAMAX [Suspect]
  3. BONIVA [Suspect]

REACTIONS (6)
  - Femur fracture [Unknown]
  - Injury [Unknown]
  - Bone disorder [Unknown]
  - Pain [Unknown]
  - Emotional distress [Unknown]
  - General physical health deterioration [Unknown]
